FAERS Safety Report 16726806 (Version 1)
Quarter: 2019Q3

REPORT INFORMATION
  Report Type: Spontaneous
  Country: US (occurrence: US)
  Receive Date: 20190821
  Receipt Date: 20190821
  Transmission Date: 20191005
  Serious: Yes (Hospitalization)
  Sender: FDA-Public Use
  Company Number: US-EX USA HOLDINGS-EXHL20192353

PATIENT
  Age: 61 Year
  Sex: Female

DRUGS (2)
  1. BENZNIDAZOLE. [Suspect]
     Active Substance: BENZNIDAZOLE
     Indication: AMERICAN TRYPANOSOMIASIS
     Dosage: 1 TABLET
     Route: 048
     Dates: start: 20190726
  2. METOPROLOL. [Concomitant]
     Active Substance: METOPROLOL
     Indication: PRODUCT USED FOR UNKNOWN INDICATION
     Dosage: UNKNOWN
     Route: 065

REACTIONS (7)
  - Dysstasia [Recovering/Resolving]
  - Glossodynia [Recovering/Resolving]
  - Blood blister [Not Recovered/Not Resolved]
  - Oropharyngeal pain [Recovering/Resolving]
  - Rash [Recovering/Resolving]
  - Intentional product use issue [None]
  - Fall [Recovering/Resolving]

NARRATIVE: CASE EVENT DATE: 2019
